FAERS Safety Report 8159616-1 (Version None)
Quarter: 2012Q1

REPORT INFORMATION
  Report Type: 
  Country: None (occurrence: None)
  Receive Date: 20120223
  Receipt Date: 20120215
  Transmission Date: 20120608
  Serious: Yes (Other)
  Sender: FDA-Public Use
  Company Number: NZ-B.I. PHARMACEUTICALS,INC./RIDGEFIELD-2012-EU-00040AU

PATIENT
  Sex: Female
  Weight: 94 kg

DRUGS (7)
  1. SOTALOL HCL [Concomitant]
     Dosage: 160 MG
  2. RANITIDINE [Concomitant]
     Dosage: 300 MG
  3. AMLODIPINE [Concomitant]
     Dosage: 5 MG
  4. ATORVASTATIN [Concomitant]
     Dosage: 40 MG
     Dates: start: 20110826
  5. ATACAND [Concomitant]
     Dosage: 8 MG
  6. PRADAXA [Suspect]
     Indication: ATRIAL FIBRILLATION
     Dosage: 300 MG
     Dates: start: 20110825, end: 20111208
  7. PRILOSEC [Concomitant]
     Dosage: 40 MG

REACTIONS (4)
  - GASTRIC MUCOSAL LESION [None]
  - ABDOMINAL DISTENSION [None]
  - GASTRIC ULCER [None]
  - GASTROOESOPHAGEAL REFLUX DISEASE [None]
